FAERS Safety Report 14228103 (Version 3)
Quarter: 2017Q4

REPORT INFORMATION
  Report Type: Spontaneous
  Country: US (occurrence: US)
  Receive Date: 20171127
  Receipt Date: 20171206
  Transmission Date: 20180321
  Serious: Yes (Hospitalization)
  Sender: FDA-Public Use
  Company Number: US-ACTELION-A-US2017-162976

PATIENT
  Age: 38 Year
  Sex: Male
  Weight: 86.17 kg

DRUGS (2)
  1. OPSUMIT [Suspect]
     Active Substance: MACITENTAN
     Indication: PULMONARY ARTERIAL HYPERTENSION
     Dosage: 10 MG, QD
     Route: 048
     Dates: start: 20160902
  2. ADEMPAS [Concomitant]
     Active Substance: RIOCIGUAT
     Dosage: 2.5 MG, TID
     Dates: start: 201706

REACTIONS (13)
  - Hiccups [Recovered/Resolved]
  - Gastrointestinal disorder [Not Recovered/Not Resolved]
  - Kidney infection [Recovered/Resolved]
  - Loss of personal independence in daily activities [Unknown]
  - Hypotension [Unknown]
  - Tachycardia [Unknown]
  - Unevaluable event [Unknown]
  - Productive cough [Unknown]
  - Frustration tolerance decreased [Unknown]
  - Oedema peripheral [Recovered/Resolved]
  - Insomnia [Unknown]
  - Stress [Unknown]
  - Rales [Unknown]

NARRATIVE: CASE EVENT DATE: 20171117
